FAERS Safety Report 21095556 (Version 3)
Quarter: 2022Q3

REPORT INFORMATION
  Report Type: Spontaneous
  Country: FR (occurrence: FR)
  Receive Date: 20220718
  Receipt Date: 20220805
  Transmission Date: 20221026
  Serious: Yes (Other)
  Sender: FDA-Public Use
  Company Number: FR-BRACCO-2022FR02707

PATIENT
  Age: 66 Year
  Sex: Female

DRUGS (1)
  1. PROHANCE [Suspect]
     Active Substance: GADOTERIDOL
     Indication: Magnetic resonance imaging
     Dosage: 17 ML, SINGLE INTAKE
     Route: 042
     Dates: start: 20220628, end: 20220628

REACTIONS (3)
  - Laryngeal oedema [Recovered/Resolved]
  - Musculoskeletal discomfort [Recovered/Resolved]
  - Laryngeal discomfort [Recovered/Resolved]

NARRATIVE: CASE EVENT DATE: 20220628
